FAERS Safety Report 6904266-5 (Version None)
Quarter: 2010Q3

REPORT INFORMATION
  Report Type: 
  Country: None (occurrence: None)
  Receive Date: 20100804
  Receipt Date: 20090414
  Transmission Date: 20110219
  Serious: No
  Sender: FDA-Public Use
  Company Number: US-PFIZER INC-2009198746

PATIENT
  Sex: Female
  Weight: 77.551 kg

DRUGS (3)
  1. LYRICA [Suspect]
     Indication: FIBROMYALGIA
     Dosage: 100 MG, 1X/DAY
     Dates: start: 20090211
  2. LYRICA [Suspect]
     Dosage: 50 MG, 1X/DAY
     Dates: start: 20090206, end: 20090211
  3. HUMIRA [Suspect]
     Indication: RHEUMATOID ARTHRITIS
     Dosage: 40 MG, (1 IN 2 WK)
     Dates: start: 20090130

REACTIONS (1)
  - HEADACHE [None]
